FAERS Safety Report 11849330 (Version 1)
Quarter: 2015Q4

REPORT INFORMATION
  Report Type: Spontaneous
  Country: US (occurrence: None)
  Receive Date: 20151217
  Receipt Date: 20151217
  Transmission Date: 20160305
  Serious: Yes (Disabling)
  Sender: FDA-Public Use
  Company Number: None

PATIENT
  Age: 57 Year
  Sex: Male
  Weight: 81.65 kg

DRUGS (2)
  1. ACETAMINOPHEN/HYDROCODONE 10-325 MG AUIROLIFE PHARMA [Suspect]
     Active Substance: ACETAMINOPHEN\HYDROCODONE
     Indication: PAIN
     Dosage: 1 PILL, Q4-6 HR
     Route: 048
     Dates: start: 20150910, end: 20151209
  2. HYDROCODONE [Concomitant]
     Active Substance: HYDROCODONE

REACTIONS (4)
  - Pain [None]
  - Product substitution issue [None]
  - Suicidal ideation [None]
  - Drug ineffective [None]
